FAERS Safety Report 4803299-2 (Version None)
Quarter: 2005Q4

REPORT INFORMATION
  Report Type: 
  Country: None (occurrence: None)
  Receive Date: 20051013
  Receipt Date: 20050929
  Transmission Date: 20060501
  Serious: Yes (Hospitalization, Other)
  Sender: FDA-Public Use
  Company Number: 2005-0008654

PATIENT
  Age: 34 Year
  Sex: Male
  Weight: 71.6683 kg

DRUGS (6)
  1. TRUVADA [Suspect]
     Indication: HIV INFECTION
     Dosage: 500 MG, 1 IN 1 D, ORAL
     Route: 048
     Dates: start: 20050513, end: 20050808
  2. BLINDED UK-427.857 [Suspect]
     Indication: HIV INFECTION
     Dates: start: 20050425, end: 20050808
  3. COMBIVIR [Concomitant]
  4. LIPITOR [Concomitant]
  5. LORATADINE [Concomitant]
  6. FAMOTIDINE [Concomitant]

REACTIONS (19)
  - ANOREXIA [None]
  - ARTHRALGIA [None]
  - ASTHENIA [None]
  - COUGH [None]
  - GRANULOMA [None]
  - HAEMANGIOMA [None]
  - HEADACHE [None]
  - HYPERLACTACIDAEMIA [None]
  - JUVENILE ARTHRITIS [None]
  - LYMPHADENOPATHY [None]
  - MYALGIA [None]
  - RASH ERYTHEMATOUS [None]
  - RASH MORBILLIFORM [None]
  - RED BLOOD CELL COUNT DECREASED [None]
  - RENAL CYST [None]
  - SINUS DISORDER [None]
  - TONSILLAR DISORDER [None]
  - TREATMENT NONCOMPLIANCE [None]
  - VIRAL INFECTION [None]
